FAERS Safety Report 4752888-2 (Version None)
Quarter: 2005Q3

REPORT INFORMATION
  Report Type: 
  Country: None (occurrence: None)
  Receive Date: 20050714
  Receipt Date: 20050421
  Transmission Date: 20060218
  Serious: Yes (Death)
  Sender: FDA-Public Use
  Company Number: 200513391US

PATIENT
  Sex: Female

DRUGS (3)
  1. TAXOTERE [Suspect]
     Indication: BREAST CANCER
  2. DOXORUBICIN HCL [Concomitant]
  3. CYTOXAN [Concomitant]

REACTIONS (1)
  - DEATH [None]
